FAERS Safety Report 9547094 (Version 2)
Quarter: 2013Q3

REPORT INFORMATION
  Report Type: Report from Study
  Country: BR (occurrence: BR)
  Receive Date: 20130924
  Receipt Date: 20130924
  Transmission Date: 20140515
  Serious: Yes (Other)
  Sender: FDA-Public Use
  Company Number: PHHY2013BR021198

PATIENT
  Sex: Female
  Weight: 71 kg

DRUGS (12)
  1. XOLAIR [Suspect]
     Indication: ASTHMA
     Dosage: 2 DF, QMO
     Dates: start: 20110105
  2. XOLAIR [Suspect]
     Dosage: 2 DF, Q4W
     Route: 030
     Dates: start: 20111025
  3. MIFLONIDE [Suspect]
     Indication: ASTHMA
     Dosage: 400 UG,
  4. FORASEQ [Suspect]
     Indication: ASTHMA
     Dosage: 1 DF, BID
  5. PROTOS (STRONTIUM RANELATE) [Concomitant]
  6. ALEC [Concomitant]
  7. LOSARTAN [Concomitant]
  8. DISOL [Concomitant]
     Dosage: UNK UKN, UNK
  9. PANTOPRAZOL [Concomitant]
     Dosage: UNK UKN, UNK
  10. MECLIN [Concomitant]
     Dosage: UNK UKN, UNK
  11. CITALOPRAM [Concomitant]
     Dosage: UNK UKN, UNK
  12. SIMVASTATIN [Concomitant]
     Dosage: UNK UKN, UNK

REACTIONS (10)
  - Tongue neoplasm [Recovering/Resolving]
  - Sinusitis [Recovering/Resolving]
  - Sneezing [Recovering/Resolving]
  - Nasal oedema [Recovered/Resolved]
  - Eye swelling [Recovered/Resolved]
  - Back pain [Recovering/Resolving]
  - Decreased appetite [Unknown]
  - Weight decreased [Recovering/Resolving]
  - Incorrect route of drug administration [Unknown]
  - Hypersensitivity [Recovered/Resolved]
